FAERS Safety Report 4646790-4 (Version None)
Quarter: 2005Q2

REPORT INFORMATION
  Report Type: 
  Country: None (occurrence: None)
  Receive Date: 20050427
  Receipt Date: 20040108
  Transmission Date: 20051028
  Serious: Yes (Hospitalization)
  Sender: FDA-Public Use
  Company Number: PL-BRISTOL-MYERS SQUIBB COMPANY-12472759

PATIENT
  Age: 67 Year
  Sex: Male

DRUGS (5)
  1. CISPLATIN [Suspect]
     Indication: NON-SMALL CELL LUNG CANCER
     Dosage: CYCLE 2, DAY 1 THERAPY DATES: 14-OCT-2003 TO 28-NOV-2003
     Route: 042
     Dates: start: 20031104, end: 20031104
  2. PACLITAXEL [Suspect]
     Indication: NON-SMALL CELL LUNG CANCER
     Dosage: CYCLE 2, DAY 1 THERAPY DATES: 14-OCT-2003 TO 28-NOV-2003
     Route: 042
     Dates: start: 20031104, end: 20031104
  3. FORMOTEROL [Concomitant]
     Dates: start: 20030908
  4. IPATROPIUM BROMIDE [Concomitant]
     Dates: start: 20030908
  5. FLUTICASONE PROPIONATE [Concomitant]
     Dates: start: 20030922

REACTIONS (2)
  - RENAL IMPAIRMENT [None]
  - RESPIRATORY TRACT INFECTION [None]
